APPROVED DRUG PRODUCT: PENTOBARBITAL SODIUM
Active Ingredient: PENTOBARBITAL SODIUM
Strength: 50MG/ML
Dosage Form/Route: INJECTABLE;INJECTION
Application: A206677 | Product #001 | TE Code: AP
Applicant: BPI LABS LLC
Approved: Nov 27, 2017 | RLD: No | RS: No | Type: RX